FAERS Safety Report 9336540 (Version 1)
Quarter: 2013Q2

REPORT INFORMATION
  Report Type: Spontaneous
  Country: US (occurrence: US)
  Receive Date: 20130607
  Receipt Date: 20130607
  Transmission Date: 20140414
  Serious: No
  Sender: FDA-Public Use
  Company Number: US-PFIZER INC-2013171602

PATIENT
  Sex: Male

DRUGS (1)
  1. CELEBREX [Suspect]
     Indication: ARTHROPATHY
     Dosage: UNK

REACTIONS (3)
  - Spondylitis [Unknown]
  - Muscle disorder [Unknown]
  - Nervous system disorder [Unknown]
